FAERS Safety Report 4603221-8 (Version None)
Quarter: 2005Q1

REPORT INFORMATION
  Report Type: 
  Country: None (occurrence: None)
  Receive Date: 20050307
  Receipt Date: 20050222
  Transmission Date: 20050727
  Serious: Yes (Other)
  Sender: FDA-Public Use
  Company Number: 2005037383

PATIENT
  Age: 40 Year
  Sex: Female
  Weight: 65 kg

DRUGS (6)
  1. MISOPROSTOL TABLET (MISOPROSTOL) [Suspect]
     Indication: ABORTION INDUCED
     Dosage: (500 MCG), ORAL
     Route: 048
     Dates: start: 20041216, end: 20041216
  2. MIFEPRISTONE (MIFEPRISTONE) [Suspect]
     Indication: ABORTION INDUCED
     Dosage: (200 MG), ORAL
     Route: 048
     Dates: start: 20041214, end: 20041214
  3. AZITHROMYCIN [Concomitant]
  4. METRONIDAZOLE [Concomitant]
  5. DICLOFENAC SODIUM [Concomitant]
  6. PROCHLORPERAZINE MALEATE [Concomitant]

REACTIONS (2)
  - CEREBROVASCULAR ACCIDENT [None]
  - DRUG EXPOSURE DURING PREGNANCY [None]
